FAERS Safety Report 4707019-1 (Version None)
Quarter: 2005Q3

REPORT INFORMATION
  Report Type: 
  Country: None (occurrence: None)
  Receive Date: 20050701
  Receipt Date: 20050620
  Transmission Date: 20060218
  Serious: Yes (Other)
  Sender: FDA-Public Use
  Company Number: 26811

PATIENT
  Age: 79 Year
  Sex: Male

DRUGS (3)
  1. ALDARA [Suspect]
     Indication: ACTINIC KERATOSIS
     Dosage: 1 IN 1 DAY (S), TOPICAL
     Route: 061
     Dates: start: 20050306, end: 20050326
  2. ALDARA [Suspect]
  3. LAMISIL [Suspect]
     Dosage: 1 IN 1 DAY (S), ORAL
     Route: 048
     Dates: start: 20050307, end: 20050318

REACTIONS (1)
  - PROSTATIC SPECIFIC ANTIGEN INCREASED [None]
